FAERS Safety Report 18747739 (Version 2)
Quarter: 2021Q1

REPORT INFORMATION
  Report Type: Spontaneous
  Country: US (occurrence: US)
  Receive Date: 20210115
  Receipt Date: 20210121
  Transmission Date: 20210419
  Serious: Yes (Death, Hospitalization)
  Sender: FDA-Public Use
  Company Number: US-PFIZER INC-2021019898

PATIENT
  Age: 25 Year
  Sex: Male

DRUGS (5)
  1. MITRAGYNA SPECIOSA LEAF [Suspect]
     Active Substance: HERBALS\MITRAGYNINE
     Dosage: UNK (INGESTION)
     Route: 048
  2. DEXTROMETHORPHAN HYDROBROMIDE. [Suspect]
     Active Substance: DEXTROMETHORPHAN HYDROBROMIDE
     Dosage: UNK(INGESTION)
     Route: 048
  3. LSD [Suspect]
     Active Substance: LYSERGIDE
     Dosage: UNK(INGESTION)
     Route: 048
  4. ETIZOLAM [Suspect]
     Active Substance: ETIZOLAM
     Dosage: UNK (INGESTION)
     Route: 048
  5. KETAMINE HCL [Suspect]
     Active Substance: KETAMINE HYDROCHLORIDE
     Dosage: UNK (INGESTION)
     Route: 048

REACTIONS (1)
  - Death [Fatal]

NARRATIVE: CASE EVENT DATE: 2019
